FAERS Safety Report 19028239 (Version 1)
Quarter: 2021Q1

REPORT INFORMATION
  Report Type: Spontaneous
  Country: US (occurrence: US)
  Receive Date: 20210318
  Receipt Date: 20210318
  Transmission Date: 20210420
  Serious: Yes (Hospitalization)
  Sender: FDA-Public Use
  Company Number: US-SUNOVION-2021SUN000884

PATIENT
  Age: 80 Year
  Sex: Female

DRUGS (1)
  1. LONHALA MAGNAIR [Suspect]
     Active Substance: GLYCOPYRROLATE
     Dosage: UNK, BID 25 MCG/1 ML
     Route: 055

REACTIONS (3)
  - Pleural effusion [Unknown]
  - Dyspnoea [Unknown]
  - Cough [Unknown]
